FAERS Safety Report 10054891 (Version 2)
Quarter: 2014Q2

REPORT INFORMATION
  Report Type: Spontaneous
  Country: ES (occurrence: DE)
  Receive Date: 20140402
  Receipt Date: 20140410
  Transmission Date: 20141212
  Serious: Yes (Hospitalization)
  Sender: FDA-Public Use
  Company Number: DE-FRI-1000066052

PATIENT
  Age: 76 Year
  Sex: Female
  Weight: 58 kg

DRUGS (11)
  1. ACLIDINIUM [Suspect]
     Indication: CHRONIC OBSTRUCTIVE PULMONARY DISEASE
     Dosage: 2 DF
     Dates: start: 20140225, end: 20140301
  2. ACLIDINIUM [Suspect]
     Indication: EMPHYSEMA
  3. FOREVER FREEDOM [Suspect]
     Indication: MEDICAL DIET
     Dosage: 100 ML
     Dates: start: 20140220, end: 20140301
  4. FOREVER FREEDOM [Suspect]
     Indication: MOBILITY DECREASED
  5. VIANI FORTE [Concomitant]
     Indication: CHRONIC OBSTRUCTIVE PULMONARY DISEASE
     Dosage: 2 DF
  6. PREDNISOLON 5 MG JENAPHARM [Concomitant]
     Indication: CHRONIC OBSTRUCTIVE PULMONARY DISEASE
     Dosage: 0.5 DF
  7. PREDNISOLON 5 MG JENAPHARM [Concomitant]
  8. DEKRISTOL 20.000 IU [Concomitant]
     Indication: VITAMIN D DEFICIENCY
  9. DEKRISTOL 20.000 IU [Concomitant]
     Indication: OSTEOPOROSIS PROPHYLAXIS
  10. NOVALGIN [Concomitant]
     Indication: PAIN
  11. NOVALGIN [Concomitant]
     Indication: PYREXIA

REACTIONS (1)
  - Hypersensitivity vasculitis [Recovered/Resolved]
